FAERS Safety Report 6393869-5 (Version None)
Quarter: 2009Q4

REPORT INFORMATION
  Report Type: 
  Country: None (occurrence: None)
  Receive Date: 20091008
  Receipt Date: 20090929
  Transmission Date: 20100525
  Serious: Yes (Other)
  Sender: FDA-Public Use
  Company Number: US-ALLERGAN-0913550US

PATIENT
  Age: 48 Year
  Sex: Female

DRUGS (7)
  1. BOTOX COSMETIC [Suspect]
     Indication: SKIN WRINKLING
     Dosage: 12 UNITS, SINGLE
     Route: 030
     Dates: start: 20090605, end: 20090605
  2. BOTOX COSMETIC [Suspect]
     Indication: SKIN ATROPHY
     Dosage: 12 UNITS, SINGLE
     Route: 030
     Dates: start: 20090619, end: 20090619
  3. BOTOX COSMETIC [Suspect]
     Indication: FACIAL PARESIS
     Dosage: UNK
     Route: 030
     Dates: start: 20090201, end: 20090201
  4. BOTOX COSMETIC [Suspect]
     Dosage: UNK
     Route: 030
     Dates: start: 20090314, end: 20090314
  5. BOTOX COSMETIC [Suspect]
     Dosage: UNK
     Route: 030
     Dates: start: 20070101
  6. RESTORIL [Concomitant]
     Indication: SLEEP DISORDER THERAPY
  7. ATIVAN [Concomitant]
     Indication: ANXIOLYTIC THERAPY
     Dosage: ONCE EVERY 6 MONTHS

REACTIONS (13)
  - ANXIETY [None]
  - CHEST DISCOMFORT [None]
  - DIZZINESS [None]
  - DRUG INEFFECTIVE [None]
  - DRUG TOXICITY [None]
  - EYELID PTOSIS [None]
  - MUSCULAR WEAKNESS [None]
  - PALPITATIONS [None]
  - PARAESTHESIA [None]
  - REFLUX OESOPHAGITIS [None]
  - SEASONAL ALLERGY [None]
  - SENSATION OF FOREIGN BODY [None]
  - VISION BLURRED [None]
